FAERS Safety Report 7354573-X (Version None)
Quarter: 2011Q1

REPORT INFORMATION
  Report Type: 
  Country: None (occurrence: None)
  Receive Date: 20110316
  Receipt Date: 20110307
  Transmission Date: 20110831
  Serious: No
  Sender: FDA-Public Use
  Company Number: US-ELI_LILLY_AND_COMPANY-US201004003594

PATIENT
  Sex: Female

DRUGS (6)
  1. FORTEO [Suspect]
     Dosage: 20 UG, DAILY (1/D)
  2. FORTEO [Suspect]
     Indication: OSTEOPOROSIS
     Dosage: 20 UG, DAILY (1/D)
     Route: 065
     Dates: start: 20091009
  3. CALTRATE [Concomitant]
     Dosage: UNK, UNKNOWN
     Route: 065
  4. MULTI-VITAMIN [Concomitant]
     Dosage: UNK, UNKNOWN
     Route: 065
  5. SYSTANE [Concomitant]
     Dosage: UNK, UNKNOWN
     Route: 065
  6. ZEGERID [Concomitant]
     Dosage: UNK, UNKNOWN
     Route: 065

REACTIONS (8)
  - MEMORY IMPAIRMENT [None]
  - GAIT DISTURBANCE [None]
  - MUSCLE DISORDER [None]
  - MUSCLE TIGHTNESS [None]
  - HEARING IMPAIRED [None]
  - DYSGRAPHIA [None]
  - MUSCLE SPASMS [None]
  - VISUAL IMPAIRMENT [None]
